FAERS Safety Report 5812663-4 (Version None)
Quarter: 2008Q3

REPORT INFORMATION
  Report Type: 
  Country: None (occurrence: None)
  Receive Date: 20080717
  Receipt Date: 20080714
  Transmission Date: 20090109
  Serious: Yes (Other)
  Sender: FDA-Public Use
  Company Number: CN-ASTRAZENECA-2008AP05250

PATIENT
  Age: 55 Year
  Sex: Female

DRUGS (2)
  1. LIDOCAINE [Suspect]
     Indication: EPIDURAL ANAESTHESIA
     Route: 008
     Dates: start: 20061101, end: 20061101
  2. LIDOCAINE [Suspect]
     Indication: HYSTERECTOMY
     Route: 008
     Dates: start: 20061101, end: 20061101

REACTIONS (1)
  - DRUG TOXICITY [None]
